FAERS Safety Report 10210397 (Version 1)
Quarter: 2014Q2

REPORT INFORMATION
  Report Type: Spontaneous
  Country: US (occurrence: None)
  Receive Date: 20140529
  Receipt Date: 20140529
  Transmission Date: 20141212
  Serious: Yes (Life-Threatening, Hospitalization, Other)
  Sender: FDA-Public Use
  Company Number: None

PATIENT
  Age: 8 Month
  Sex: Male
  Weight: 9.1 kg

DRUGS (5)
  1. ZANAMIVIR [Suspect]
     Indication: SEPTIC SHOCK
     Route: 042
  2. AMLODIPINE [Concomitant]
  3. ENALAPRIL [Concomitant]
  4. LASIX [Concomitant]
  5. DIUSIL [Concomitant]

REACTIONS (6)
  - Renal impairment [None]
  - Blood electrolytes decreased [None]
  - Hypotension [None]
  - Heart rate decreased [None]
  - Pyrexia [None]
  - Septic shock [None]
